FAERS Safety Report 5314769-5 (Version None)
Quarter: 2007Q2

REPORT INFORMATION
  Report Type: 
  Country: None (occurrence: None)
  Receive Date: 20070502
  Receipt Date: 20070426
  Transmission Date: 20071010
  Serious: Yes (Other)
  Sender: FDA-Public Use
  Company Number: 2007UW08139

PATIENT
  Age: 64 Year
  Sex: Female
  Weight: 73.5 kg

DRUGS (3)
  1. TOPROL-XL [Suspect]
     Route: 048
  2. TRIAMTERENE [Concomitant]
  3. VYTORIN [Concomitant]

REACTIONS (6)
  - ABNORMAL DREAMS [None]
  - ATRIAL FIBRILLATION [None]
  - BLOOD PRESSURE INCREASED [None]
  - HEART RATE INCREASED [None]
  - INSOMNIA [None]
  - PALPITATIONS [None]
